FAERS Safety Report 13903528 (Version 1)
Quarter: 2017Q3

REPORT INFORMATION
  Report Type: Spontaneous
  Country: CO (occurrence: CO)
  Receive Date: 20170824
  Receipt Date: 20170824
  Transmission Date: 20171127
  Serious: Yes (Other)
  Sender: FDA-Public Use
  Company Number: CO-PFIZER INC-2017317765

PATIENT
  Age: 12 Year
  Sex: Female

DRUGS (1)
  1. GENOTROPIN [Suspect]
     Active Substance: SOMATROPIN
     Indication: GROWTH HORMONE DEFICIENCY
     Dosage: 1.2 MG, DAILY
     Route: 058
     Dates: start: 201605

REACTIONS (4)
  - Pyrexia [Recovered/Resolved]
  - Device issue [Unknown]
  - Drug dose omission [Unknown]
  - Sinusitis [Recovered/Resolved]

NARRATIVE: CASE EVENT DATE: 20170713
